FAERS Safety Report 15362162 (Version 1)
Quarter: 2018Q3

REPORT INFORMATION
  Report Type: Spontaneous
  Country: FR (occurrence: FR)
  Receive Date: 20180907
  Receipt Date: 20180907
  Transmission Date: 20181010
  Serious: Yes (Congenital Anomaly)
  Sender: FDA-Public Use
  Company Number: FR-ALLERGAN-1843333US

PATIENT
  Sex: Male

DRUGS (1)
  1. SILODOSIN ? BP [Suspect]
     Active Substance: SILODOSIN
     Indication: MATERNAL EXPOSURE TIMING UNSPECIFIED
     Dosage: UNK
     Route: 064

REACTIONS (5)
  - Microtia [Not Recovered/Not Resolved]
  - Congenital hearing disorder [Recovered/Resolved with Sequelae]
  - Spine malformation [Not Recovered/Not Resolved]
  - Patent ductus arteriosus [Not Recovered/Not Resolved]
  - Foetal exposure during pregnancy [Unknown]

NARRATIVE: CASE EVENT DATE: 2016
